FAERS Safety Report 7725068 (Version 4)
Quarter: 2013Q1

REPORT INFORMATION
  Report Type: Report from Study
  Country: JP (occurrence: JP)
  Receive Date: 20101221
  Receipt Date: 20130326
  Transmission Date: 20140127
  Serious: Yes (Hospitalization)
  Sender: FDA-Public Use
  Company Number: JP-ABBOTT-10P-087-0692862-00

PATIENT
  Age: 45 Year
  Sex: Female

DRUGS (4)
  1. LEUPRORELIN DEPOT [Suspect]
     Indication: BREAST CANCER
     Route: 058
     Dates: start: 20061122, end: 20080625
  2. NOLVADEX [Concomitant]
     Indication: BREAST CANCER
     Route: 048
     Dates: start: 20061122
  3. LOXONIN [Concomitant]
     Indication: HEADACHE
     Route: 048
     Dates: start: 20080704
  4. BUSCOPAN [Concomitant]
     Indication: ABDOMINAL PAIN
     Route: 048
     Dates: start: 20101122

REACTIONS (1)
  - Cholecystitis [Recovered/Resolved]
